FAERS Safety Report 8064540-9 (Version None)
Quarter: 2012Q1

REPORT INFORMATION
  Report Type: 
  Country: None (occurrence: None)
  Receive Date: 20120123
  Receipt Date: 20120120
  Transmission Date: 20120608
  Serious: Yes (Other)
  Sender: FDA-Public Use
  Company Number: BR-ROCHE-710114

PATIENT
  Sex: Female
  Weight: 46.5 kg

DRUGS (8)
  1. MIRCERA [Suspect]
     Dosage: RESTARTED
     Route: 042
  2. ACETYLSALICYLIC ACID SRT [Concomitant]
  3. MIRCERA [Suspect]
     Indication: NEPHROGENIC ANAEMIA
     Dosage: DATE OF LAST DOSE PRIOR TO SAE: 05 MARCH 2010, TEMPORARILY INTERRUPTED, DOSAGE FORM: PFS
     Route: 042
     Dates: start: 20091007, end: 20100611
  4. FOLIC ACID [Concomitant]
  5. AMIODARONE HCL [Concomitant]
  6. VITAMIN B COMPLEX CAP [Concomitant]
  7. AMLODIPINE [Concomitant]
  8. OMEPRAZOLE [Concomitant]

REACTIONS (1)
  - LUNG NEOPLASM [None]
